FAERS Safety Report 13135083 (Version 1)
Quarter: 2017Q1

REPORT INFORMATION
  Report Type: Spontaneous
  Country: US (occurrence: US)
  Receive Date: 20170120
  Receipt Date: 20170120
  Transmission Date: 20170428
  Serious: No
  Sender: FDA-Public Use
  Company Number: US-ASTRAZENECA-2017SE04297

PATIENT
  Sex: Male
  Weight: 77.1 kg

DRUGS (5)
  1. NIACIN. [Concomitant]
     Active Substance: NIACIN
     Indication: SUPPLEMENTATION THERAPY
  2. CRESTOR [Suspect]
     Active Substance: ROSUVASTATIN CALCIUM
     Indication: BLOOD CHOLESTEROL INCREASED
     Route: 048
     Dates: start: 20170112
  3. CRESTOR [Suspect]
     Active Substance: ROSUVASTATIN CALCIUM
     Indication: BLOOD CHOLESTEROL INCREASED
     Dosage: 10 MG THREE TIMES IN WEEK
     Route: 048
     Dates: start: 201610, end: 20170111
  4. MAGNESIUM SUPPLEMENT [Concomitant]
     Indication: SUPPLEMENTATION THERAPY
  5. CRESTOR [Suspect]
     Active Substance: ROSUVASTATIN CALCIUM
     Indication: BLOOD CHOLESTEROL INCREASED
     Dosage: 5 MG THREE TIMES IN WEEK
     Route: 048
     Dates: end: 201610

REACTIONS (3)
  - Myalgia [Unknown]
  - Weight decreased [Unknown]
  - Intentional product misuse [Unknown]
